FAERS Safety Report 21233663 (Version 1)
Quarter: 2022Q3

REPORT INFORMATION
  Report Type: Spontaneous
  Country: US (occurrence: None)
  Receive Date: 20220819
  Receipt Date: 20220819
  Transmission Date: 20221027
  Serious: Yes (Other)
  Sender: FDA-Public Use
  Company Number: None

PATIENT
  Age: 37 Year
  Sex: Female
  Weight: 108 kg

DRUGS (3)
  1. LUPRON DEPOT [Suspect]
     Active Substance: LEUPROLIDE ACETATE
     Indication: Heavy menstrual bleeding
     Dosage: FREQUENCY : MONTHLY;?
     Route: 030
     Dates: start: 20220523
  2. SINGULAIR [Concomitant]
     Active Substance: MONTELUKAST SODIUM
  3. Albuterol sulfate nebulized sol [Concomitant]

REACTIONS (3)
  - Hot flush [None]
  - Headache [None]
  - Nausea [None]

NARRATIVE: CASE EVENT DATE: 20220526
